FAERS Safety Report 7432152-3 (Version None)
Quarter: 2011Q2

REPORT INFORMATION
  Report Type: 
  Country: None (occurrence: None)
  Receive Date: 20110414
  Receipt Date: 20110405
  Transmission Date: 20111010
  Serious: Yes (Death)
  Sender: FDA-Public Use
  Company Number: UTC-006151

PATIENT
  Age: 63 Year
  Sex: Female

DRUGS (5)
  1. REMODULIN [Suspect]
     Indication: PULMONARY ARTERIAL HYPERTENSION
     Dosage: 122.4 UG/KG (0.085 UG/KG, 1 IN 1 MIN), INTRAVENOUS
     Route: 042
     Dates: start: 20100412
  2. TRACLEER [Concomitant]
  3. REVATIO [Concomitant]
  4. DIURETICS (DIURETICS) [Concomitant]
  5. COUMADIN [Concomitant]

REACTIONS (6)
  - CHEST PAIN [None]
  - OEDEMA PERIPHERAL [None]
  - SINUS TACHYCARDIA [None]
  - DIARRHOEA [None]
  - DYSPNOEA [None]
  - RIGHT VENTRICULAR FAILURE [None]
